FAERS Safety Report 4931351-X (Version None)
Quarter: 2006Q1

REPORT INFORMATION
  Report Type: 
  Country: None (occurrence: None)
  Receive Date: 20060228
  Receipt Date: 20060216
  Transmission Date: 20060701
  Serious: Yes (Death)
  Sender: FDA-Public Use
  Company Number: 2006020643

PATIENT
  Age: 86 Year
  Sex: Female

DRUGS (17)
  1. SULPERAZON (SULBACTAM, CEFOPERAZONE) [Suspect]
     Indication: PNEUMONIA
     Dosage: 2 GRAM, (BID), INTRAVENOUS
     Route: 042
     Dates: start: 20060126, end: 20060201
  2. LASIX [Suspect]
     Indication: CARDIAC FAILURE
     Dosage: 20 MG (20 MG, 1 IN 1 D), ORAL; 10 MG, (QD), INTRAVENOUS
     Route: 048
     Dates: start: 20060126, end: 20060129
  3. LASIX [Suspect]
     Indication: CARDIAC FAILURE
     Dosage: 20 MG (20 MG, 1 IN 1 D), ORAL; 10 MG, (QD), INTRAVENOUS
     Route: 048
     Dates: start: 20060130, end: 20060201
  4. DIGOXIN [Suspect]
     Indication: CARDIAC FAILURE
     Dosage: 0.125 MG (0.125 MG, 1 IN 1 D), ORAL
     Route: 048
     Dates: start: 20060126, end: 20060201
  5. ASPIRIN [Suspect]
     Indication: ATRIAL FIBRILLATION
     Dosage: 100 MG (100 MG, 1 IN 1 D), ORAL
     Route: 048
     Dates: start: 20060126, end: 20060201
  6. ALDACTONE [Concomitant]
  7. VERAPAMIL HYDROCHLORIDE [Concomitant]
  8. LANIRAPID (METILDIGOXIN) [Concomitant]
  9. MAGNESIUM OXIDE (MAGNESIUM OXIDE) [Concomitant]
  10. ZOLPIDEM TARTRATE [Concomitant]
  11. NITRODERM [Concomitant]
  12. GRAMALIL (TIAPRIDE HYDROCHLORIDE) [Concomitant]
  13. NEULEPTIL (PERICIAZINE) [Concomitant]
  14. SOLDEM 3A (CARBOHYDRATES NOS, POTASSIUM CHLORIDE, SODIUM CHLORIDE, SOD [Concomitant]
  15. OLITA T (ELECTROLYTES NOS) [Concomitant]
  16. PANTHENOL (PANTHENOL) [Concomitant]
  17. GLUCOSE (GLUCOSE) [Concomitant]

REACTIONS (8)
  - BLOOD PRESSURE DECREASED [None]
  - COMA HEPATIC [None]
  - CONDITION AGGRAVATED [None]
  - CYANOSIS [None]
  - HEPATITIS FULMINANT [None]
  - MULTI-ORGAN FAILURE [None]
  - RENAL IMPAIRMENT [None]
  - RESPIRATORY DISTRESS [None]
